FAERS Safety Report 12155413 (Version 1)
Quarter: 2016Q1

REPORT INFORMATION
  Report Type: Spontaneous
  Country: CN (occurrence: CN)
  Receive Date: 20160307
  Receipt Date: 20160307
  Transmission Date: 20160526
  Serious: Yes (Other)
  Sender: FDA-Public Use
  Company Number: CN-009507513-1601CHN008480

PATIENT
  Age: 46 Year
  Sex: Male

DRUGS (2)
  1. ELOSON [Suspect]
     Active Substance: MOMETASONE
     Indication: PRURITUS
     Dosage: 5 MG, BID
     Route: 061
     Dates: start: 20150710, end: 20150711
  2. FU YANG KE LI [Concomitant]
     Indication: PRURITUS
     Dosage: 1 DF, BID
     Route: 048
     Dates: start: 20150710, end: 20150711

REACTIONS (3)
  - Hypersensitivity [Recovering/Resolving]
  - Rash [Recovering/Resolving]
  - Pruritus [Recovering/Resolving]

NARRATIVE: CASE EVENT DATE: 20150712
